FAERS Safety Report 8235932-X (Version None)
Quarter: 2012Q1

REPORT INFORMATION
  Report Type: 
  Country: None (occurrence: None)
  Receive Date: 20120326
  Receipt Date: 20120316
  Transmission Date: 20120608
  Serious: Yes (Other)
  Sender: FDA-Public Use
  Company Number: US-MERCK-1203USA01622

PATIENT
  Sex: Male

DRUGS (1)
  1. MEVACOR [Suspect]
     Indication: BLOOD CHOLESTEROL INCREASED
     Route: 065

REACTIONS (3)
  - BRAIN INJURY [None]
  - PROGRESSIVE SUPRANUCLEAR PALSY [None]
  - MYOPATHY [None]
